FAERS Safety Report 8329121-8 (Version None)
Quarter: 2012Q2

REPORT INFORMATION
  Report Type: 
  Country: None (occurrence: None)
  Receive Date: 20120502
  Receipt Date: 20120423
  Transmission Date: 20120825
  Serious: Yes (Hospitalization)
  Sender: FDA-Public Use
  Company Number: JP-SHIRE-ALL1-2011-04126

PATIENT
  Sex: Male
  Weight: 59 kg

DRUGS (1)
  1. IDURSULFASE [Suspect]
     Indication: MUCOPOLYSACCHARIDOSIS II
     Dosage: 24 MG, 1X/2WKS
     Route: 041
     Dates: start: 20100720

REACTIONS (2)
  - THROMBOCYTOPENIA [None]
  - HYPERBILIRUBINAEMIA [None]
